FAERS Safety Report 7406250-4 (Version None)
Quarter: 2011Q2

REPORT INFORMATION
  Report Type: 
  Country: None (occurrence: None)
  Receive Date: 20110411
  Receipt Date: 20110331
  Transmission Date: 20111010
  Serious: Yes (Hospitalization)
  Sender: FDA-Public Use
  Company Number: US-JNJFOC-20110400556

PATIENT
  Age: 57 Year
  Sex: Female
  Weight: 60.78 kg

DRUGS (1)
  1. SUDAFED PE CHILDREN'S COLD AND COUGH LIQUID [Suspect]
     Indication: MULTIPLE ALLERGIES
     Dosage: 2 TEASPOONS ONCE
     Route: 048

REACTIONS (5)
  - VOMITING [None]
  - HEADACHE [None]
  - PRODUCT QUALITY ISSUE [None]
  - HYPERTENSION [None]
  - NAUSEA [None]
